FAERS Safety Report 5958582-4 (Version None)
Quarter: 2008Q4

REPORT INFORMATION
  Report Type: 
  Country: None (occurrence: None)
  Receive Date: 20081119
  Receipt Date: 20081111
  Transmission Date: 20090506
  Serious: Yes (Disabling)
  Sender: FDA-Public Use
  Company Number: AU-ASTRAZENECA-2008AP08808

PATIENT
  Age: 55 Year
  Sex: Male

DRUGS (7)
  1. CRESTOR [Suspect]
     Indication: HYPERCHOLESTEROLAEMIA
     Route: 048
  2. DIMIREL [Concomitant]
  3. LIQUID ZINC [Concomitant]
  4. METOPROLOL TARTRATE [Concomitant]
  5. METFORMIN HCL [Concomitant]
  6. TRITACE [Concomitant]
  7. COENZYME Q10 [Concomitant]

REACTIONS (1)
  - MUSCLE SPASMS [None]
